FAERS Safety Report 7644037-8 (Version None)
Quarter: 2011Q3

REPORT INFORMATION
  Report Type: 
  Country: None (occurrence: None)
  Receive Date: 20110729
  Receipt Date: 20110719
  Transmission Date: 20111222
  Serious: Yes (Hospitalization)
  Sender: FDA-Public Use
  Company Number: GR-CELGENEUS-066-C5013-11061170

PATIENT
  Sex: Male
  Weight: 82 kg

DRUGS (20)
  1. FUROSEMIDE [Suspect]
     Indication: CORONARY ARTERY BYPASS
     Dosage: 40 MILLIGRAM
     Route: 048
     Dates: start: 20101211
  2. DABIGATRAN [Concomitant]
     Route: 065
  3. CARVEDILOL [Concomitant]
     Indication: ATRIAL FIBRILLATION
     Dosage: 25 MILLIGRAM
     Route: 048
     Dates: start: 20100620
  4. VALACICLOVIR [Concomitant]
     Indication: HERPES ZOSTER
     Dosage: 500 MILLIGRAM
     Route: 048
     Dates: start: 20101116
  5. NIFEDIPINE [Concomitant]
     Indication: HYPERTENSION
     Dosage: 10 MILLIGRAM
     Route: 048
     Dates: start: 20110608
  6. ASPIRIN [Concomitant]
     Dosage: 100 MILLIGRAM
     Route: 048
     Dates: start: 20100620
  7. PANTOPRAZOLE SODIUM [Concomitant]
     Dosage: 40 MILLIGRAM
     Route: 048
     Dates: start: 20030101
  8. ALLOPURINOL [Concomitant]
     Dosage: 100 MILLIGRAM
     Route: 048
     Dates: start: 20110608
  9. INSULIN [Concomitant]
     Indication: DIABETES MELLITUS
     Dosage: 16 IU (INTERNATIONAL UNIT)
     Route: 058
     Dates: start: 20000101
  10. NIFEDIPINE [Concomitant]
     Dosage: 20 MILLIGRAM
     Route: 048
     Dates: start: 20000101
  11. LENALIDOMIDE [Suspect]
     Indication: MULTIPLE MYELOMA
     Dosage: 10 MILLIGRAM
     Route: 048
     Dates: start: 20101118
  12. LENALIDOMIDE [Suspect]
     Dosage: 5 MILLIGRAM
     Route: 048
     Dates: start: 20110511, end: 20110531
  13. PREDNISOLONE [Concomitant]
     Indication: GOUT
     Dosage: 5 MILLIGRAM
     Route: 048
     Dates: start: 20101210
  14. LORAZEPAM [Concomitant]
     Indication: ANXIETY DISORDER
     Dosage: 2.5 MILLIGRAM
     Route: 048
     Dates: start: 20101201
  15. ALLOPURINOL [Concomitant]
     Dosage: 100 MILLIGRAM
     Route: 048
     Dates: start: 20101215
  16. DEXAMETHASONE [Suspect]
     Dosage: 12 MILLIGRAM
     Route: 065
     Dates: start: 20110511, end: 20110601
  17. SINTROM [Concomitant]
     Indication: ATRIAL FIBRILLATION
     Dosage: 16 IU (INTERNATIONAL UNIT)
     Route: 048
     Dates: start: 20100620
  18. DEXAMETHASONE [Suspect]
     Indication: MULTIPLE MYELOMA
     Dosage: 20 MILLIGRAM
     Route: 065
     Dates: start: 20101118
  19. ASPIRIN [Concomitant]
     Indication: CORONARY ARTERY BYPASS
  20. VALSARTAN [Concomitant]
     Indication: HYPERTENSION
     Dosage: 160 MILLIGRAM
     Route: 048
     Dates: start: 20000101

REACTIONS (1)
  - LEFT VENTRICULAR DYSFUNCTION [None]
